FAERS Safety Report 15246098 (Version 1)
Quarter: 2018Q3

REPORT INFORMATION
  Report Type: Spontaneous
  Country: US (occurrence: US)
  Receive Date: 20180806
  Receipt Date: 20180806
  Transmission Date: 20181010
  Serious: Yes (Other)
  Sender: FDA-Public Use
  Company Number: US-ANIPHARMA-2018-US-011326

PATIENT
  Age: 25 Year
  Sex: Female

DRUGS (1)
  1. VALPROIC ACID (NON?SPECIFIC) [Suspect]
     Active Substance: VALPROIC ACID
     Indication: EPILEPSY

REACTIONS (2)
  - Myopathy [Unknown]
  - Lipid metabolism disorder [Unknown]
